FAERS Safety Report 10623508 (Version 2)
Quarter: 2014Q4

REPORT INFORMATION
  Report Type: Spontaneous
  Country: US (occurrence: US)
  Receive Date: 20141203
  Receipt Date: 20141204
  Transmission Date: 20150529
  Serious: No
  Sender: FDA-Public Use
  Company Number: US-009507513-1412USA000883

PATIENT
  Age: 24 Year
  Sex: Female
  Weight: 104.31 kg

DRUGS (1)
  1. NEXPLANON [Suspect]
     Active Substance: ETONOGESTREL
     Indication: CONTRACEPTION
     Dosage: 1 ROD FOR THREE YEARS, UPPER LEFT ARM
     Route: 059
     Dates: start: 20120620

REACTIONS (8)
  - Presyncope [Unknown]
  - Libido increased [Unknown]
  - Feeling hot [Unknown]
  - Dyspepsia [Unknown]
  - Breast tenderness [Unknown]
  - Dizziness [Unknown]
  - Mood altered [Unknown]
  - Unintended pregnancy [Unknown]

NARRATIVE: CASE EVENT DATE: 201411
